FAERS Safety Report 21643037 (Version 1)
Quarter: 2022Q4

REPORT INFORMATION
  Report Type: Spontaneous
  Country: US (occurrence: US)
  Receive Date: 20221125
  Receipt Date: 20221125
  Transmission Date: 20230113
  Serious: No
  Sender: FDA-Public Use
  Company Number: US-BAUSCH-BL-2022-025683

PATIENT
  Age: 77 Year
  Sex: Female

DRUGS (1)
  1. EFUDEX [Suspect]
     Active Substance: FLUOROURACIL
     Indication: Skin disorder
     Route: 065

REACTIONS (2)
  - Skin disorder [Unknown]
  - Condition aggravated [Unknown]
